FAERS Safety Report 18359562 (Version 2)
Quarter: 2020Q4

REPORT INFORMATION
  Report Type: Spontaneous
  Country: CL (occurrence: CL)
  Receive Date: 20201008
  Receipt Date: 20201019
  Transmission Date: 20210114
  Serious: Yes (Other)
  Sender: FDA-Public Use
  Company Number: CL-ASTELLAS-2020US012035

PATIENT
  Age: 70 Year
  Sex: Male

DRUGS (2)
  1. TRANSTEC [Concomitant]
     Active Substance: BUPRENORPHINE
     Indication: PRODUCT USED FOR UNKNOWN INDICATION
     Dosage: UNK UNK, UNKNOWN FREQ.(1/4 PATCH UNTIL REACHING 1 WHOLE)
     Route: 065
  2. XTANDI [Suspect]
     Active Substance: ENZALUTAMIDE
     Indication: PROSTATE CANCER METASTATIC
     Route: 048
     Dates: start: 20191014, end: 202009

REACTIONS (8)
  - Pain [Unknown]
  - Drug ineffective [Unknown]
  - Skin lesion [Unknown]
  - Depression [Recovering/Resolving]
  - Respiratory distress [Unknown]
  - Haemoptysis [Unknown]
  - Weight decreased [Unknown]
  - Prostatic specific antigen increased [Not Recovered/Not Resolved]

NARRATIVE: CASE EVENT DATE: 202003
